FAERS Safety Report 5306654-X (Version None)
Quarter: 2007Q2

REPORT INFORMATION
  Report Type: 
  Country: None (occurrence: None)
  Receive Date: 20070424
  Receipt Date: 20070412
  Transmission Date: 20071010
  Serious: Yes (Other)
  Sender: FDA-Public Use
  Company Number: US-PFIZER INC-2007030095

PATIENT
  Sex: Male
  Weight: 122.72 kg

DRUGS (2)
  1. CELEBREX [Suspect]
     Indication: OSTEOARTHRITIS
     Dates: start: 20070301
  2. IBUPROFEN [Concomitant]

REACTIONS (3)
  - ALCOHOL INTOLERANCE [None]
  - PRURITUS [None]
  - URTICARIA [None]
